FAERS Safety Report 5580883-2 (Version None)
Quarter: 2008Q1

REPORT INFORMATION
  Report Type: 
  Country: None (occurrence: None)
  Receive Date: 20080103
  Receipt Date: 20071220
  Transmission Date: 20080703
  Serious: Yes (Other)
  Sender: FDA-Public Use
  Company Number: US-AMGEN-QUU257825

PATIENT
  Sex: Female

DRUGS (7)
  1. ENBREL [Suspect]
     Indication: RHEUMATOID ARTHRITIS
     Route: 058
     Dates: start: 20011108, end: 20071001
  2. DIOVAN [Concomitant]
  3. CALAN [Concomitant]
  4. ACTONEL [Concomitant]
  5. PRILOSEC [Concomitant]
  6. CLARITIN [Concomitant]
  7. LEFLUNOMIDE [Concomitant]
     Dates: start: 20010525, end: 20020725

REACTIONS (4)
  - ATYPICAL MYCOBACTERIAL INFECTION [None]
  - CHRONIC OBSTRUCTIVE PULMONARY DISEASE [None]
  - EMPHYSEMA [None]
  - SINUSITIS [None]
